FAERS Safety Report 23138662 (Version 1)
Quarter: 2023Q4

REPORT INFORMATION
  Report Type: Spontaneous
  Country: US (occurrence: None)
  Receive Date: 20231101
  Receipt Date: 20231101
  Transmission Date: 20240110
  Serious: Yes (Other)
  Sender: FDA-Public Use
  Company Number: None

PATIENT
  Age: 57 Year
  Sex: Female
  Weight: 51.75 kg

DRUGS (1)
  1. BOTOX [Suspect]
     Active Substance: ONABOTULINUMTOXINA
     Indication: Migraine

REACTIONS (6)
  - Headache [None]
  - Injection site reaction [None]
  - Burning sensation [None]
  - Spinal disorder [None]
  - Wrong technique in product usage process [None]
  - Impaired work ability [None]

NARRATIVE: CASE EVENT DATE: 20230815
